FAERS Safety Report 7652555-1 (Version None)
Quarter: 2011Q3

REPORT INFORMATION
  Report Type: 
  Country: None (occurrence: None)
  Receive Date: 20110803
  Receipt Date: 20110726
  Transmission Date: 20111222
  Serious: Yes (Other)
  Sender: FDA-Public Use
  Company Number: US-BRISTOL-MYERS SQUIBB COMPANY-15925506

PATIENT
  Age: 55 Year
  Sex: Female

DRUGS (5)
  1. CYMBALTA [Concomitant]
  2. VALIUM [Concomitant]
  3. ELAVIL [Concomitant]
  4. COUMADIN [Suspect]
     Dosage: DURATION:ABOUT 4 YEARS
  5. ZESTRIL [Concomitant]

REACTIONS (4)
  - SHOULDER OPERATION [None]
  - THROMBOSIS [None]
  - NEPHRECTOMY [None]
  - RENAL DISORDER [None]
